FAERS Safety Report 9716516 (Version 1)
Quarter: 2013Q4

REPORT INFORMATION
  Report Type: Spontaneous
  Country: US (occurrence: US)
  Receive Date: 20131127
  Receipt Date: 20131127
  Transmission Date: 20140711
  Serious: No
  Sender: FDA-Public Use
  Company Number: US-PFIZER INC-2013334768

PATIENT
  Sex: Female

DRUGS (1)
  1. VFEND [Suspect]
     Dosage: 200 MG, 2X/DAY

REACTIONS (7)
  - Bradyphrenia [Unknown]
  - Dysarthria [Unknown]
  - Somnolence [Unknown]
  - Visual impairment [Unknown]
  - Irritability [Unknown]
  - Photophobia [Unknown]
  - Dizziness [Unknown]
